FAERS Safety Report 17605818 (Version 2)
Quarter: 2023Q1

REPORT INFORMATION
  Report Type: Spontaneous
  Country: HR (occurrence: HR)
  Receive Date: 20200331
  Receipt Date: 20230210
  Transmission Date: 20230418
  Serious: Yes (Death, Life-Threatening, Hospitalization, Disabling, Other)
  Sender: FDA-Public Use
  Company Number: HR-EMA-DD-20200324-SHUKLA_V-113335

PATIENT
  Age: 40 Year
  Sex: Female

DRUGS (26)
  1. ACYCLOVIR [Suspect]
     Active Substance: ACYCLOVIR
     Indication: Antibiotic prophylaxis
     Dosage: UNK
     Route: 065
  2. THIOGUANINE [Suspect]
     Active Substance: THIOGUANINE
     Indication: Refractory anaemia with an excess of blasts
     Dosage: UNK
     Route: 065
  3. CIPROFLOXACIN [Suspect]
     Active Substance: CIPROFLOXACIN
     Indication: Antibiotic prophylaxis
     Dosage: UNK, CYC ( R-CHOEP PROTOCOL)
     Route: 065
  4. FLUCONAZOLE [Suspect]
     Active Substance: FLUCONAZOLE
     Indication: Antibiotic prophylaxis
     Dosage: UNK
     Route: 065
  5. AZACITIDINE [Suspect]
     Active Substance: AZACITIDINE
     Indication: Acute myeloid leukaemia
     Dosage: UNK UNK, CYC (THREE CYCLES)
     Route: 065
  6. VINBLASTINE [Suspect]
     Active Substance: VINBLASTINE
     Indication: Diffuse large B-cell lymphoma stage IV
     Dosage: UNK, CYC (THREE CYCLES (R-CHEVP PROTOCOL))
     Route: 065
  7. CYCLOPHOSPHAMIDE [Suspect]
     Active Substance: CYCLOPHOSPHAMIDE
     Indication: Diffuse large B-cell lymphoma stage IV
     Dosage: UNK, CYC (FIVE CYCLES (R-CHOEP PROTOCOL) AND THREE CYCLES (R-CHEVP PROTOCOL))
     Route: 065
  8. RITUXIMAB [Suspect]
     Active Substance: RITUXIMAB
     Indication: Diffuse large B-cell lymphoma stage IV
     Dosage: UNK, (R-CHOEP PROTOCOL)
     Route: 005
  9. DOXORUBICIN HYDROCHLORIDE [Suspect]
     Active Substance: DOXORUBICIN HYDROCHLORIDE
     Indication: Diffuse large B-cell lymphoma stage IV
     Dosage: UNK, CYC (FIVE CYCLES (R-CHOEP PROTOCOL) AND THREE CYCLES (R-CHEVP PROTOCOL))
     Route: 065
  10. CYCLOPHOSPHAMIDE [Suspect]
     Active Substance: CYCLOPHOSPHAMIDE
     Indication: Product used for unknown indication
     Dosage: UNK UNK, CYC ((R-CHEVP PROTOCOL))
     Route: 065
  11. METHYLPREDNISOLONE [Suspect]
     Active Substance: METHYLPREDNISOLONE
     Indication: Diffuse large B-cell lymphoma stage IV
     Dosage: UNK UNK, CYC (FIVE CYCLES (R-CHOEP PROTOCOL) AND THREE CYCLES (R-CHEVP PROTOCOL))
     Route: 065
  12. VINCRISTINE [Suspect]
     Active Substance: VINCRISTINE
     Indication: Diffuse large B-cell lymphoma stage IV
     Dosage: UNK, CYC (FIVE CYCLES (R-CHOEP PROTOCOL))
     Route: 065
  13. ETOPOSIDE [Suspect]
     Active Substance: ETOPOSIDE
     Indication: Diffuse large B-cell lymphoma stage IV
     Dosage: UNK, CYC (FIVE CYCLES (R-CHOEP PROTOCOL) AND THREE CYCLES (R-CHEVP PROTOCOL))
     Route: 065
  14. ETOPOSIDE [Suspect]
     Active Substance: ETOPOSIDE
     Dosage: UNK, CYC (R-CHEVP PROTOCOL)
     Route: 065
  15. DOXIL [Suspect]
     Active Substance: DOXORUBICIN HYDROCHLORIDE
     Indication: Product used for unknown indication
     Dosage: UNK, CYC (THREE CYCLES (R-CHEVP PROTOCOL))
     Route: 042
  16. DIFLUCAN [Concomitant]
     Active Substance: FLUCONAZOLE
     Indication: Product used for unknown indication
     Dosage: UNK
     Route: 065
  17. CARVEDILOL [Concomitant]
     Active Substance: CARVEDILOL
     Indication: Product used for unknown indication
     Dosage: UNK
     Route: 065
  18. RAMIPRIL [Concomitant]
     Active Substance: RAMIPRIL
     Indication: Product used for unknown indication
     Dosage: UNK
     Route: 065
  19. CURASEPT (CHLORHEXIDINE) [Concomitant]
     Indication: Product used for unknown indication
     Dosage: UNK, TID (MOUTHWASH THREE TIMES A DAY)
     Route: 065
  20. BETAMETHASONE DIPROPIONATE [Concomitant]
     Active Substance: BETAMETHASONE DIPROPIONATE
     Indication: Product used for unknown indication
     Dosage: UNK
     Route: 065
  21. CONTROLOC [Concomitant]
     Active Substance: PANTOPRAZOLE SODIUM
     Indication: Product used for unknown indication
     Dosage: UNK
     Route: 065
  22. BENZYDAMINE HYDROCHLORIDE [Concomitant]
     Active Substance: BENZYDAMINE HYDROCHLORIDE
     Indication: Product used for unknown indication
     Dosage: UNK
     Route: 065
  23. GELCLAIR (ENOXOLONE + HYALURONATE SODIUM + POVIDONE) [Concomitant]
     Indication: Product used for unknown indication
     Dosage: UNK
     Route: 065
  24. METILDIGOXIN [Concomitant]
     Active Substance: METILDIGOXIN
     Indication: Product used for unknown indication
     Dosage: UNK
     Route: 065
  25. FUROSEMIDE [Concomitant]
     Active Substance: FUROSEMIDE
     Indication: Product used for unknown indication
     Dosage: UNK
     Route: 065
  26. ALDACTONE [Concomitant]
     Active Substance: SPIRONOLACTONE
     Indication: Product used for unknown indication
     Dosage: UNK
     Route: 065

REACTIONS (12)
  - Staphylococcal sepsis [Fatal]
  - Aspergillus infection [Fatal]
  - Myelodysplastic syndrome [Unknown]
  - Pancytopenia [Unknown]
  - Thrombocytopenia [Unknown]
  - Mouth ulceration [Unknown]
  - Leukaemia [Unknown]
  - Neutropenia [Unknown]
  - Acute myeloid leukaemia [Unknown]
  - Refractory anaemia with an excess of blasts [Unknown]
  - Congestive cardiomyopathy [Unknown]
  - Toxic neuropathy [Unknown]
